FAERS Safety Report 16563679 (Version 1)
Quarter: 2019Q3

REPORT INFORMATION
  Report Type: Spontaneous
  Country: US (occurrence: US)
  Receive Date: 20190712
  Receipt Date: 20190712
  Transmission Date: 20191004
  Serious: No
  Sender: FDA-Public Use
  Company Number: US-TORRENT-00006818

PATIENT
  Age: 50 Year
  Sex: Female
  Weight: 111 kg

DRUGS (2)
  1. METOPROLOL. [Concomitant]
     Active Substance: METOPROLOL
     Indication: HYPERTENSION
     Dosage: 50 MG ONCE A DAY
     Dates: start: 20140619
  2. AMLODIPINE AND VALSARTAN AND HYDROCHLOROTHIAZIDE [Suspect]
     Active Substance: AMLODIPINE\HYDROCHLOROTHIAZIDE\VALSARTAN
     Indication: HYPERTENSION
     Dosage: 10 MG/320 MG/25 MG TABLETS
     Dates: start: 20180619

REACTIONS (4)
  - Ear pain [Not Recovered/Not Resolved]
  - Irritability [Not Recovered/Not Resolved]
  - Tinnitus [Not Recovered/Not Resolved]
  - Hot flush [Not Recovered/Not Resolved]

NARRATIVE: CASE EVENT DATE: 201807
